FAERS Safety Report 8517360-2 (Version None)
Quarter: 2012Q3

REPORT INFORMATION
  Report Type: 
  Country: None (occurrence: None)
  Receive Date: 20120718
  Receipt Date: 20120709
  Transmission Date: 20120928
  Serious: Yes (Disabling)
  Sender: FDA-Public Use
  Company Number: FR-ASTRAZENECA-2012SE48816

PATIENT
  Age: 554 Month
  Sex: Male

DRUGS (10)
  1. CIALIS [Concomitant]
     Dosage: AS REQUIRED
  2. MARAVIROC [Concomitant]
  3. NORVIR [Suspect]
     Route: 048
     Dates: start: 19990101
  4. CRESTOR [Suspect]
     Route: 048
  5. CRESTOR [Suspect]
     Route: 048
     Dates: start: 20111101
  6. BACTRIM [Concomitant]
  7. INTELENCE [Suspect]
     Route: 048
     Dates: start: 20081101
  8. PREZISTA [Concomitant]
     Dates: start: 20081101, end: 20110901
  9. ISENTRESS [Concomitant]
  10. DESLORATADINE [Concomitant]

REACTIONS (2)
  - BLOOD CREATINE PHOSPHOKINASE INCREASED [None]
  - NEUROPATHY PERIPHERAL [None]
